FAERS Safety Report 4799680-0 (Version None)
Quarter: 2005Q4

REPORT INFORMATION
  Report Type: 
  Country: None (occurrence: None)
  Receive Date: 20051013
  Receipt Date: 20050923
  Transmission Date: 20060501
  Serious: Yes (Hospitalization, Other)
  Sender: FDA-Public Use
  Company Number: 2005134380

PATIENT
  Age: 47 Year
  Sex: Female

DRUGS (5)
  1. ZIPRASIDONE               ((ZIPRASIDONE) [Suspect]
     Indication: PSYCHOTIC DISORDER
     Dosage: 160 MG 80 MG, 2 1 D), ORAL
     Route: 048
     Dates: start: 20050401, end: 20050801
  2. RISPERIDONE [Suspect]
     Indication: ILL-DEFINED DISORDER
     Dates: start: 20050101
  3. BIPERIDEN (BIPERIDEN) [Concomitant]
  4. DIAZEPAM [Concomitant]
  5. VALPROATE SODIUM [Concomitant]

REACTIONS (4)
  - ARRHYTHMIA [None]
  - EXTRAPYRAMIDAL DISORDER [None]
  - HYPOTENSION [None]
  - QUADRIPARESIS [None]
